FAERS Safety Report 8481605 (Version 6)
Quarter: 2012Q4

REPORT INFORMATION
  Report Type: 
  Country: DE (occurrence: US)
  Receive Date: 20120329
  Receipt Date: 20121009
  Transmission Date: 20130627
  Serious: Yes (Hospitalization, Other)
  Sender: FDA-Public Use
  Company Number: PHEH2012US006725

PATIENT
  Age: 59 Year
  Sex: Male

DRUGS (8)
  1. GILENYA [Suspect]
     Dosage: 0.5 mg, QD
     Route: 048
     Dates: start: 201112
  2. PLAVIX [Concomitant]
  3. LIPITOR [Concomitant]
     Indication: BLOOD CHOLESTEROL INCREASED
  4. LOPID [Concomitant]
  5. METOPROLOL [Concomitant]
  6. INDAPAMIDE [Concomitant]
  7. ASPIRIN [Concomitant]
     Dosage: 325 mg, QD
  8. DILTIAZEM [Concomitant]

REACTIONS (2)
  - Myocardial infarction [Recovering/Resolving]
  - Chest pain [Recovering/Resolving]
